FAERS Safety Report 9000314 (Version 1)
Quarter: 2013Q1

REPORT INFORMATION
  Report Type: Spontaneous
  Country: US (occurrence: None)
  Receive Date: 20130102
  Receipt Date: 20130102
  Transmission Date: 20140127
  Serious: Yes (Hospitalization)
  Sender: FDA-Public Use
  Company Number: None

PATIENT
  Age: 50 Year
  Sex: Male
  Weight: 136.7 kg

DRUGS (2)
  1. HYDROCHLOROTHIAZIDE/LISINOPRIL [Suspect]
     Indication: HYPERTENSION
     Route: 048
  2. AZITHROMYCIN [Suspect]
     Route: 048
     Dates: start: 20121104, end: 20121110

REACTIONS (1)
  - Angioedema [None]
